FAERS Safety Report 6240817-4 (Version None)
Quarter: 2009Q2

REPORT INFORMATION
  Report Type: 
  Country: None (occurrence: None)
  Receive Date: 20090623
  Receipt Date: 20090611
  Transmission Date: 20091009
  Serious: Yes (Other)
  Sender: FDA-Public Use
  Company Number: US-ELI_LILLY_AND_COMPANY-US200904007339

PATIENT
  Age: 83 Year
  Sex: Female
  Weight: 56.236 kg

DRUGS (3)
  1. FORTEO [Suspect]
     Indication: OSTEOPOROSIS
     Dosage: 20 UG, UNK
     Dates: start: 20080506, end: 20090224
  2. CALCIUM [Concomitant]
     Dates: end: 20090201
  3. VITAMIN D [Concomitant]

REACTIONS (3)
  - BLOOD CREATININE INCREASED [None]
  - DEHYDRATION [None]
  - HYPERCALCAEMIA [None]
